FAERS Safety Report 6471411-8 (Version None)
Quarter: 2009Q4

REPORT INFORMATION
  Report Type: 
  Country: None (occurrence: None)
  Receive Date: 20091203
  Receipt Date: 20080505
  Transmission Date: 20100525
  Serious: Yes (Death, Other)
  Sender: FDA-Public Use
  Company Number: US-ELI_LILLY_AND_COMPANY-US200802001158

PATIENT
  Age: 57 Year
  Sex: Female

DRUGS (5)
  1. XIGRIS [Suspect]
     Indication: SEPSIS
     Dosage: 24 UG/KG EVERY HOUR
     Route: 042
     Dates: start: 20080102, end: 20080104
  2. LEVOPHED [Concomitant]
     Dosage: UNK, UNK
     Dates: start: 20080101
  3. VASOPRESSIN [Concomitant]
     Dosage: UNK, UNK
     Dates: start: 20080101
  4. OXYGEN [Concomitant]
     Dosage: UNK, UNK
     Dates: start: 20080101
  5. PREVACID [Concomitant]

REACTIONS (3)
  - CEREBRAL HAEMORRHAGE [None]
  - DISSEMINATED INTRAVASCULAR COAGULATION [None]
  - SEPSIS [None]
